FAERS Safety Report 4628805-2 (Version None)
Quarter: 2005Q2

REPORT INFORMATION
  Report Type: 
  Country: None (occurrence: None)
  Receive Date: 20050406
  Receipt Date: 20050323
  Transmission Date: 20051028
  Serious: Yes (Hospitalization)
  Sender: FDA-Public Use
  Company Number: DSA_22199_2002

PATIENT
  Age: 56 Year
  Sex: Female
  Weight: 64.8644 kg

DRUGS (9)
  1. VASOTEC [Suspect]
     Indication: MIGRAINE
     Dosage: 20 MG TID PO
     Route: 048
     Dates: end: 20000501
  2. VANCOMYCIN [Suspect]
     Indication: CLOSTRIDIUM COLITIS
  3. CIPRO [Concomitant]
  4. VANCOCIN HCL [Concomitant]
  5. PREVACID [Concomitant]
  6. LOVENOX [Concomitant]
  7. DANOCRINE [Concomitant]
  8. KLOR-CON [Concomitant]
  9. LOSYN [Concomitant]

REACTIONS (20)
  - ANGIONEUROTIC OEDEMA [None]
  - BLOOD PRESSURE INCREASED [None]
  - BODY TEMPERATURE INCREASED [None]
  - CHEST PAIN [None]
  - CHOLELITHIASIS [None]
  - CLOSTRIDIUM COLITIS [None]
  - DYSARTHRIA [None]
  - ERYTHEMA [None]
  - GAIT DISTURBANCE [None]
  - GASTROENTERITIS HELICOBACTER [None]
  - GLOBAL AMNESIA [None]
  - HEART RATE INCREASED [None]
  - HEPATIC ENZYME ABNORMAL [None]
  - INTESTINAL POLYP [None]
  - NASAL DISORDER [None]
  - OESOPHAGEAL STENOSIS [None]
  - PHOTOSENSITIVITY REACTION [None]
  - PRURITUS [None]
  - RASH [None]
  - RED MAN SYNDROME [None]
